FAERS Safety Report 10542084 (Version 1)
Quarter: 2014Q4

REPORT INFORMATION
  Report Type: Spontaneous
  Country: US (occurrence: US)
  Receive Date: 20141024
  Receipt Date: 20141024
  Transmission Date: 20150529
  Serious: No
  Sender: FDA-Public Use
  Company Number: US-NOVEN-14US010374

PATIENT
  Age: 31 Year
  Sex: Female

DRUGS (1)
  1. BRISDELLE [Suspect]
     Active Substance: PAROXETINE MESYLATE
     Indication: PREMENSTRUAL DYSPHORIC DISORDER
     Dosage: 7.5 MG, BEDTIME
     Route: 048
     Dates: start: 201406, end: 201408

REACTIONS (2)
  - Off label use [Recovered/Resolved]
  - Myalgia [Recovered/Resolved]

NARRATIVE: CASE EVENT DATE: 201406
